FAERS Safety Report 6688623-0 (Version None)
Quarter: 2010Q2

REPORT INFORMATION
  Report Type: 
  Country: None (occurrence: None)
  Receive Date: 20100412
  Receipt Date: 20100330
  Transmission Date: 20101027
  Serious: Yes (Death, Hospitalization)
  Sender: FDA-Public Use
  Company Number: B0646141A

PATIENT
  Age: 15 Year
  Sex: Female

DRUGS (12)
  1. BUSULPHAN (FORMULATION UNKNOWN) (GENERIC) (BUSULFAN) [Suspect]
     Indication: BONE MARROW CONDITIONING REGIMEN
  2. CO-TRIMOXAZOLE (FORMULATION UNKNOWN) (GENERIC) (SULFAMETHOXAZOLE/TRIME [Suspect]
     Indication: PYREXIA
  3. CYCLOPHOSPHAMIDE [Suspect]
     Indication: BONE MARROW CONDITIONING REGIMEN
  4. ANTILYMPHOCYTE IG (FORMULATION UNKNOWN) (ANTILYMPHOCYTE IG) [Suspect]
     Indication: BONE MARROW CONDITIONING REGIMEN
  5. CYCLOSPORINE [Suspect]
     Indication: PROPHYLAXIS AGAINST TRANSPLANT REJECTION
  6. CORTICOSTEROID (FORMULATION UNKNOWN) (CORTICOSTEROID) [Suspect]
     Indication: BONE MARROW CONDITIONING REGIMEN
     Dosage: INTRAVENOUS
     Route: 042
  7. ROXITHROMYCIN (FORMULATION UNKNOWN) (ROXITHROMYCIN) [Suspect]
     Indication: PYREXIA
  8. CEFTAZIDIME SODIUM [Concomitant]
  9. VANCOMYCIN [Concomitant]
  10. METRONIDAZOLE [Concomitant]
  11. GANCICLOVIR [Concomitant]
  12. FOSCARNET SODIUM [Concomitant]

REACTIONS (7)
  - ACUTE RESPIRATORY FAILURE [None]
  - CONFUSIONAL STATE [None]
  - CYTOMEGALOVIRUS INFECTION [None]
  - GENERAL PHYSICAL HEALTH DETERIORATION [None]
  - HEPATOTOXICITY [None]
  - INTERSTITIAL LUNG DISEASE [None]
  - TOXOPLASMOSIS [None]
